FAERS Safety Report 17781550 (Version 2)
Quarter: 2020Q3

REPORT INFORMATION
  Report Type: Spontaneous
  Country: US (occurrence: US)
  Receive Date: 20200513
  Receipt Date: 20200811
  Transmission Date: 20201102
  Serious: No
  Sender: FDA-Public Use
  Company Number: US-JNJFOC-20200503034

PATIENT
  Age: 75 Year
  Sex: Female
  Weight: 67.9 kg

DRUGS (10)
  1. IMBRUVICA [Concomitant]
     Active Substance: IBRUTINIB
     Route: 048
     Dates: start: 20160125
  2. COENZYME Q10 [Concomitant]
     Active Substance: DIETARY SUPPLEMENT\UBIDECARENONE
     Route: 048
  3. VALACYCLOVIR [Concomitant]
     Active Substance: VALACYCLOVIR HYDROCHLORIDE
     Route: 048
  4. TYLENOL EXTRA STRENGTH [Concomitant]
     Active Substance: ACETAMINOPHEN
  5. ZYTIGA [Suspect]
     Active Substance: ABIRATERONE ACETATE
     Indication: PRODUCT USED FOR UNKNOWN INDICATION
     Route: 048
  6. PROBIOTIC                          /06395501/ [Concomitant]
     Active Substance: BIFIDOBACTERIUM ANIMALIS LACTIS
     Route: 048
  7. MELATONIN [Concomitant]
     Active Substance: MELATONIN
  8. CITRACAL PLUS D [Concomitant]
     Route: 048
  9. PROLIA [Concomitant]
     Active Substance: DENOSUMAB
     Dosage: 60 MG/ML EVERY 6
     Route: 058
  10. VITAMIN D3 [Concomitant]
     Active Substance: CHOLECALCIFEROL
     Dosage: 2000 U
     Route: 048

REACTIONS (5)
  - Limb injury [Recovering/Resolving]
  - Ecchymosis [Recovering/Resolving]
  - Off label use [Unknown]
  - Oedema peripheral [Recovering/Resolving]
  - Incorrect dose administered [Unknown]

NARRATIVE: CASE EVENT DATE: 20190816
